FAERS Safety Report 6304784-7 (Version None)
Quarter: 2009Q3

REPORT INFORMATION
  Report Type: 
  Country: None (occurrence: None)
  Receive Date: 20090811
  Receipt Date: 20090806
  Transmission Date: 20100115
  Serious: No
  Sender: FDA-Public Use
  Company Number: US-B.I. PHARMACEUTICALS,INC./RIDGEFIELD-2009-BP-07686BP

PATIENT
  Sex: Male

DRUGS (10)
  1. SPIRIVA [Suspect]
     Indication: LUNG NEOPLASM MALIGNANT
     Dosage: 18 MCG
     Route: 055
     Dates: start: 20090305, end: 20090603
  2. SPIRIVA [Suspect]
     Indication: DYSPNOEA
  3. SPIRIVA [Suspect]
     Indication: CHRONIC OBSTRUCTIVE PULMONARY DISEASE
  4. LASIX [Concomitant]
     Indication: HYPERTENSION
     Dosage: 40 MG
     Route: 048
  5. LIPITOR [Concomitant]
     Indication: BLOOD CHOLESTEROL INCREASED
     Dosage: 10 MG
     Route: 048
  6. COZAAR [Concomitant]
     Indication: HYPERTENSION
     Route: 048
  7. VERAPAMIL [Concomitant]
     Indication: HYPERTENSION
     Dosage: 480 MG
     Route: 048
  8. LORTAB [Concomitant]
  9. BACTRIM [Concomitant]
  10. PHENERGAN [Concomitant]

REACTIONS (4)
  - AGEUSIA [None]
  - DRY MOUTH [None]
  - GLOSSODYNIA [None]
  - ORAL PAIN [None]
